FAERS Safety Report 8769389 (Version 1)
Quarter: 2012Q4

REPORT INFORMATION
  Report Type: 
  Country: US (occurrence: US)
  Receive Date: 20120904
  Receipt Date: 20120904
  Transmission Date: 20130627
  Serious: Yes (Other)
  Sender: FDA-Public Use
  Company Number: US-NAPPMUNDI-USA-2012-0089356

PATIENT
  Age: 40 Year
  Sex: Female

DRUGS (2)
  1. BUTRANS [Suspect]
     Indication: PAIN
     Dosage: 10 mcg/hr, UNK
     Route: 062
  2. ALCOHOL [Suspect]
     Indication: ALCOHOL USE

REACTIONS (3)
  - Substance abuse [Recovered/Resolved]
  - Impaired driving ability [Unknown]
  - Road traffic accident [Unknown]
